FAERS Safety Report 9117207 (Version 2)
Quarter: 2013Q2

REPORT INFORMATION
  Report Type: Report from Study
  Country: GB (occurrence: GB)
  Receive Date: 20130128
  Receipt Date: 20130508
  Transmission Date: 20140414
  Serious: Yes (Hospitalization)
  Sender: FDA-Public Use
  Company Number: GB-ROCHE-1184396

PATIENT
  Age: 65 Year
  Sex: Male

DRUGS (4)
  1. BEVACIZUMAB [Suspect]
     Indication: GASTRIC CANCER
     Dosage: MOST RECENT DOSE: 01/FEB/2012
     Route: 042
     Dates: start: 20111221
  2. CAPECITABINE [Suspect]
     Indication: GASTRIC CANCER
     Dosage: MOST RECENT DOSE: 22/FEB/2012
     Route: 048
     Dates: start: 20111221
  3. CISPLATIN [Suspect]
     Indication: GASTRIC CANCER
     Dosage: MOST RECENT DOSE: 01/FEB/2012
     Route: 042
     Dates: start: 20111221
  4. EPIRUBICIN [Suspect]
     Indication: GASTRIC CANCER
     Dosage: MOST RECENT DOSE: 01/FEB/2012
     Route: 042
     Dates: start: 20111221

REACTIONS (1)
  - Dysphagia [Recovered/Resolved with Sequelae]
